FAERS Safety Report 21792720 (Version 1)
Quarter: 2022Q4

REPORT INFORMATION
  Report Type: Spontaneous
  Country: US (occurrence: US)
  Receive Date: 20221229
  Receipt Date: 20221229
  Transmission Date: 20230113
  Serious: No
  Sender: FDA-Public Use
  Company Number: US-drreddys-SPO/USA/22/0158944

PATIENT
  Age: 79 Year
  Sex: Male

DRUGS (19)
  1. LENALIDOMIDE [Suspect]
     Active Substance: LENALIDOMIDE
     Indication: Plasma cell myeloma
     Dosage: TAKE 1 CAPSULE BY MOUTH WHOLE W/ OR W/O FOOD AT SAME TIME DAILY ON DAYS 1-21, THEN OFF FOR 7 DAYS FO
     Route: 048
  2. ALLOPURINOL [Concomitant]
     Active Substance: ALLOPURINOL
     Indication: Product used for unknown indication
  3. FAMOTIDINE [Concomitant]
     Active Substance: FAMOTIDINE
     Indication: Product used for unknown indication
  4. MONTELUKAST [Concomitant]
     Active Substance: MONTELUKAST SODIUM
     Indication: Product used for unknown indication
  5. LINZESS CAP 290MCG [Concomitant]
     Indication: Product used for unknown indication
  6. AMOXICILLIN [Concomitant]
     Active Substance: AMOXICILLIN
     Indication: Product used for unknown indication
  7. AMOXICILLIN [Concomitant]
     Active Substance: AMOXICILLIN
  8. MIDODRINE HC TAB 10MG [Concomitant]
     Indication: Product used for unknown indication
  9. PREDNISONE [Concomitant]
     Active Substance: PREDNISONE
     Indication: Product used for unknown indication
  10. PREDNISONE [Concomitant]
     Active Substance: PREDNISONE
  11. VENTOLIN HFA AER 108 (90 [Concomitant]
     Indication: Product used for unknown indication
  12. ADVAIR HFA AER 45-21MCG/A [Concomitant]
     Indication: Product used for unknown indication
  13. ALBUTEROL SU NEB (2.5MG/ [Concomitant]
     Indication: Product used for unknown indication
  14. CARBIDOPA-LE TBC 0-200MG [Concomitant]
     Indication: Product used for unknown indication
  15. DEXAMETHASONE [Concomitant]
     Active Substance: DEXAMETHASONE
     Indication: Product used for unknown indication
  16. LEXAPRO TAB 20MG [Concomitant]
     Indication: Product used for unknown indication
  17. MIRTAZAPINE TAB 7.5MG [Concomitant]
     Indication: Product used for unknown indication
  18. TRAMADOL HCL TAB 50MG [Concomitant]
     Indication: Product used for unknown indication
  19. VALACYCLOVIR TAB 500MG [Concomitant]
     Indication: Product used for unknown indication

REACTIONS (1)
  - Treatment noncompliance [Unknown]
